FAERS Safety Report 22278197 (Version 1)
Quarter: 2023Q2

REPORT INFORMATION
  Report Type: Report from Study
  Country: BR (occurrence: BR)
  Receive Date: 20230503
  Receipt Date: 20230503
  Transmission Date: 20230722
  Serious: Yes (Other)
  Sender: FDA-Public Use
  Company Number: BR-CELLTRION INC.-2023BR009074

PATIENT

DRUGS (6)
  1. TRUXIMA [Suspect]
     Active Substance: RITUXIMAB-ABBS
     Indication: Product used for unknown indication
     Dosage: 4 AMPOULES EVERY 6 MONTHS
     Route: 042
     Dates: start: 20220930
  2. PREDNISOLONE [Concomitant]
     Active Substance: PREDNISOLONE
     Indication: Granulomatosis with polyangiitis
     Dosage: 10 MG, 1 CAPSULE DAY
     Route: 048
  3. FOLIC ACID [Concomitant]
     Active Substance: FOLIC ACID
     Indication: Nephropathy
     Dosage: 1 CAPSULE DAY
     Route: 048
  4. COMPLEX B [BIOTIN;CALCIUM PANTOTHENATE;CYANOCOBALAMIN;FOLIC ACID;NICOT [Concomitant]
     Indication: Nephropathy
     Dosage: 1 CAPSULE DAY
     Route: 048
  5. FUROSEMIDE [Concomitant]
     Active Substance: FUROSEMIDE
     Indication: Nephropathy
     Dosage: 2 CAPSULE DAY
     Route: 048
  6. INDAPAMIDE [Concomitant]
     Active Substance: INDAPAMIDE
     Indication: Nephropathy
     Dosage: 1 CAPSULE DAY
     Route: 048

REACTIONS (8)
  - Chronic kidney disease [Unknown]
  - Visual impairment [Unknown]
  - Gait disturbance [Unknown]
  - Asthenia [Unknown]
  - Pain [Unknown]
  - Headache [Unknown]
  - Product distribution issue [Unknown]
  - Therapy interrupted [Unknown]
